FAERS Safety Report 8443294 (Version 8)
Quarter: 2013Q2

REPORT INFORMATION
  Report Type: Spontaneous
  Country: US (occurrence: US)
  Receive Date: 20120306
  Receipt Date: 20130517
  Transmission Date: 20140414
  Serious: Yes (Hospitalization, Other)
  Sender: FDA-Public Use
  Company Number: US-MERCK-1203USA00315

PATIENT
  Sex: Female
  Weight: 70.75 kg

DRUGS (6)
  1. FOSAMAX [Suspect]
     Indication: PROPHYLAXIS
     Dosage: 70 MG, UNK
     Route: 048
  2. FOSAMAX [Suspect]
     Indication: BONE LOSS
     Dosage: 70 MG, UNK
     Route: 048
     Dates: start: 20050118, end: 200801
  3. FOSAMAX [Suspect]
     Indication: OSTEOPOROSIS
  4. FOSAMAX [Suspect]
     Indication: PROPHYLAXIS
     Route: 048
  5. FOSAMAX [Suspect]
     Indication: BONE LOSS
  6. FOSAMAX [Suspect]
     Indication: OSTEOPOROSIS

REACTIONS (46)
  - Closed fracture manipulation [Unknown]
  - Open reduction of fracture [Unknown]
  - Foot operation [Unknown]
  - Fall [Unknown]
  - Fall [Unknown]
  - Cholecystectomy [Unknown]
  - Hysterectomy [Unknown]
  - Femur fracture [Unknown]
  - Femur fracture [Unknown]
  - Femur fracture [Unknown]
  - Rotator cuff syndrome [Unknown]
  - Fall [Unknown]
  - Anxiety [Unknown]
  - Depression [Unknown]
  - Vitamin D deficiency [Unknown]
  - Tooth extraction [Unknown]
  - Blood cholesterol increased [Unknown]
  - Fall [Unknown]
  - Osteoarthritis [Unknown]
  - Ataxia [Unknown]
  - Cervical spinal stenosis [Unknown]
  - Scoliosis [Not Recovered/Not Resolved]
  - Hypoaesthesia [Unknown]
  - Fatigue [Unknown]
  - Inner ear disorder [Unknown]
  - Hyperlipidaemia [Unknown]
  - Bursitis [Unknown]
  - Joint effusion [Unknown]
  - Chondromalacia [Unknown]
  - Cardiac failure congestive [Unknown]
  - Osteopenia [Unknown]
  - Gait disturbance [Unknown]
  - Fall [Unknown]
  - Foot fracture [Unknown]
  - Type 2 diabetes mellitus [Unknown]
  - Sinus tachycardia [Unknown]
  - Electrocardiogram ST-T change [Unknown]
  - Hypertension [Unknown]
  - Vertigo [Unknown]
  - Arthralgia [Unknown]
  - Dizziness [Recovering/Resolving]
  - Pain in extremity [Unknown]
  - Headache [Unknown]
  - Back pain [Unknown]
  - Musculoskeletal pain [Unknown]
  - Arthralgia [Unknown]
